FAERS Safety Report 9331873 (Version 2)
Quarter: 2013Q3

REPORT INFORMATION
  Report Type: Spontaneous
  Country: US (occurrence: None)
  Receive Date: 20130603
  Receipt Date: 20130814
  Transmission Date: 20140515
  Serious: Yes (Other)
  Sender: FDA-Public Use
  Company Number: ACO_36493_2013

PATIENT
  Age: 54 Year
  Sex: Female
  Weight: 38.5 kg

DRUGS (10)
  1. AMPYRA [Suspect]
     Indication: PRODUCT USED FOR UNKNOWN INDICATION
  2. NAPROSYN (NAPROXEN) [Concomitant]
  3. AMBIEN (ZOLPIDEM TARTRATE) [Concomitant]
  4. ZANTAC (RANITIDINE HYDROCHLORIDE) [Concomitant]
  5. CORICIDIN HBP COLD AND FLU (CHLORPHENAMINE MALEATE, PARACETAMOL) [Concomitant]
  6. PREDNISONE (PREDNISONE) [Concomitant]
  7. HYDROCODONE W/APAP (HYDROCODONE BITARTRATE, PARACETAMOL) [Concomitant]
  8. OXYBUTYNIN CHLORIDE (OXYBUTYNIN HYDROCHLORIDE) [Concomitant]
  9. PHENOBARBITAL AND BELLADONNA (ATROPINE SULFATE, HYOSCINE HYDROBROMIDE, HYOSCYAMINE SULFATE, PHENOBARBITAL) [Concomitant]
  10. CALCIUM/VITAMIN D (CALCIUM CARBONATE, ERGOCALCIFEROL) [Concomitant]

REACTIONS (3)
  - Convulsion [None]
  - Extra dose administered [None]
  - Multiple sclerosis relapse [None]
